FAERS Safety Report 4923365-0 (Version None)
Quarter: 2006Q1

REPORT INFORMATION
  Report Type: 
  Country: None (occurrence: None)
  Receive Date: 20060227
  Receipt Date: 20060216
  Transmission Date: 20060701
  Serious: Yes (Other)
  Sender: FDA-Public Use
  Company Number: US-BRISTOL-MYERS SQUIBB COMPANY-13288428

PATIENT
  Sex: Male

DRUGS (1)
  1. COUMADIN [Suspect]
     Route: 048

REACTIONS (5)
  - CHROMATURIA [None]
  - HEADACHE [None]
  - NEOPLASM MALIGNANT [None]
  - PROTHROMBIN LEVEL DECREASED [None]
  - SWELLING [None]
